FAERS Safety Report 5674130-0 (Version None)
Quarter: 2008Q1

REPORT INFORMATION
  Report Type: 
  Country: None (occurrence: None)
  Receive Date: 20080320
  Receipt Date: 20080307
  Transmission Date: 20080703
  Serious: Yes (Hospitalization)
  Sender: FDA-Public Use
  Company Number: US-SANOFI-SYNTHELABO-A03200605963

PATIENT
  Sex: Male
  Weight: 88 kg

DRUGS (24)
  1. AMBIEN [Suspect]
     Indication: INSOMNIA
     Dosage: 1 OR 2 TABLETS HS
     Route: 048
     Dates: start: 20050101, end: 20051221
  2. AMBIEN [Suspect]
     Route: 048
     Dates: start: 20051221
  3. DOXEPIN HCL [Suspect]
     Indication: DEPRESSION
     Dosage: 1 OR 2 TABLETS HS
     Route: 048
     Dates: start: 19970101
  4. DIAZEPAM [Suspect]
     Indication: ANXIETY
     Route: 048
     Dates: start: 20050101, end: 20051221
  5. DIAZEPAM [Suspect]
     Route: 048
     Dates: start: 20051221
  6. HYDROCODONE BITARTRATE [Suspect]
     Indication: DRUG USE FOR UNKNOWN INDICATION
     Dosage: ^5/50^ 2 TABLETS HS
     Route: 048
     Dates: start: 20050801, end: 20051221
  7. SU-011,248 [Suspect]
     Indication: RENAL CELL CARCINOMA
     Dosage: 50 MG ONCE DAILY (4 WEEKS ON, 2 WEEKS OFF)
     Route: 048
     Dates: start: 20051026, end: 20051122
  8. SU-011,248 [Suspect]
     Route: 048
     Dates: start: 20051209
  9. DOCUSATE SODIUM [Concomitant]
     Indication: DRUG USE FOR UNKNOWN INDICATION
     Route: 048
     Dates: start: 20010101
  10. REMERON [Concomitant]
     Indication: DEPRESSION
     Route: 048
     Dates: start: 19950101
  11. ACTIGALL [Concomitant]
     Indication: CHOLELITHIASIS
     Route: 048
     Dates: start: 20050101
  12. FLOVENT [Concomitant]
     Indication: DRUG USE FOR UNKNOWN INDICATION
     Route: 055
     Dates: start: 20050101
  13. SEREVENT [Concomitant]
     Indication: CHRONIC OBSTRUCTIVE PULMONARY DISEASE
     Route: 055
     Dates: start: 19990101
  14. MONTELUKAST SODIUM [Concomitant]
     Indication: CHRONIC OBSTRUCTIVE PULMONARY DISEASE
     Route: 048
     Dates: start: 19950101
  15. ZANTAC [Concomitant]
     Indication: GASTROOESOPHAGEAL REFLUX DISEASE
     Route: 048
     Dates: start: 19960101
  16. PROSCAR [Concomitant]
     Indication: DRUG USE FOR UNKNOWN INDICATION
     Route: 048
     Dates: start: 20020101
  17. ATENOLOL [Concomitant]
     Indication: HYPERTENSION
     Route: 048
     Dates: start: 19950101
  18. TAMSULOSIN HCL [Concomitant]
     Indication: DRUG USE FOR UNKNOWN INDICATION
     Route: 048
     Dates: start: 20020101
  19. ALTACE [Concomitant]
     Indication: DRUG USE FOR UNKNOWN INDICATION
     Route: 048
     Dates: start: 19950101
  20. ZETIA [Concomitant]
     Indication: DRUG USE FOR UNKNOWN INDICATION
     Route: 048
     Dates: start: 19950101
  21. LIPITOR [Concomitant]
     Indication: DRUG USE FOR UNKNOWN INDICATION
     Route: 048
     Dates: start: 19940101
  22. LANTUS [Concomitant]
     Indication: DRUG USE FOR UNKNOWN INDICATION
     Route: 058
     Dates: start: 20050101
  23. METFORMIN HCL [Concomitant]
     Indication: DRUG USE FOR UNKNOWN INDICATION
     Route: 048
     Dates: start: 20050101
  24. OXYCONTIN [Concomitant]
     Indication: PAIN
     Dosage: UNK
     Route: 048
     Dates: start: 20050101

REACTIONS (7)
  - CHILLS [None]
  - CONFUSIONAL STATE [None]
  - HYPOTENSION [None]
  - MENTAL STATUS CHANGES [None]
  - METABOLIC ENCEPHALOPATHY [None]
  - PYREXIA [None]
  - SOMNOLENCE [None]
